FAERS Safety Report 5780597-X (Version None)
Quarter: 2008Q2

REPORT INFORMATION
  Report Type: 
  Country: None (occurrence: None)
  Receive Date: 20080620
  Receipt Date: 20080616
  Transmission Date: 20081010
  Serious: Yes (Death, Hospitalization)
  Sender: FDA-Public Use
  Company Number: UA-ABBOTT-08P-269-0458129-00

PATIENT
  Age: 7 Year
  Sex: Male

DRUGS (3)
  1. DEPAKENE [Suspect]
     Indication: EPILEPSY
     Route: 048
     Dates: start: 20080101, end: 20080423
  2. DEPAKENE [Suspect]
     Indication: EPILEPSY
     Route: 048
     Dates: start: 20080424
  3. DEPAKENE [Suspect]

REACTIONS (18)
  - ACETONAEMIA [None]
  - ASTHENIA [None]
  - BLOOD BILIRUBIN INCREASED [None]
  - BRAIN OEDEMA [None]
  - CONDITION AGGRAVATED [None]
  - CONVULSION [None]
  - DERMATITIS ALLERGIC [None]
  - GRAND MAL CONVULSION [None]
  - HAEMORRHAGIC DISORDER [None]
  - HEPATIC NECROSIS [None]
  - HEPATITIS TOXIC [None]
  - HEPATOTOXICITY [None]
  - HYPOTHERMIA [None]
  - JAUNDICE [None]
  - PANCREATITIS [None]
  - PERIPHERAL COLDNESS [None]
  - PULMONARY OEDEMA [None]
  - SOMNOLENCE [None]
